FAERS Safety Report 6263443-X (Version None)
Quarter: 2009Q3

REPORT INFORMATION
  Report Type: 
  Country: None (occurrence: None)
  Receive Date: 20090710
  Receipt Date: 20090219
  Transmission Date: 20100115
  Serious: No
  Sender: FDA-Public Use
  Company Number: A0769495A

PATIENT
  Age: 79 Year
  Sex: Male

DRUGS (6)
  1. FLOVENT [Suspect]
     Dosage: 2PUFF TWICE PER DAY
     Route: 055
     Dates: start: 20090129
  2. LOTREL [Concomitant]
  3. TOPROL-XL [Concomitant]
  4. MUCINEX [Concomitant]
  5. CLONAZEPAM [Concomitant]
  6. ASPIRIN [Concomitant]

REACTIONS (1)
  - NIGHT SWEATS [None]
